FAERS Safety Report 7342872-7 (Version None)
Quarter: 2011Q1

REPORT INFORMATION
  Report Type: 
  Country: None (occurrence: None)
  Receive Date: 20110308
  Receipt Date: 20110308
  Transmission Date: 20110831
  Serious: Yes (Hospitalization)
  Sender: FDA-Public Use
  Company Number: None

PATIENT
  Sex: Male
  Weight: 56.6996 kg

DRUGS (2)
  1. NAPROXEN [Suspect]
     Indication: CHEST PAIN
     Dosage: TWICE A DAY AM 1 ONCE   PM 1 ONCE EVERY HOUR
     Dates: start: 20100801
  2. ROBAXIN [Suspect]
     Dates: end: 20100801

REACTIONS (7)
  - HAEMATOCHEZIA [None]
  - ULCER [None]
  - DRUG HYPERSENSITIVITY [None]
  - MALAISE [None]
  - VISION BLURRED [None]
  - ABDOMINAL DISCOMFORT [None]
  - ABDOMINAL PAIN UPPER [None]
